FAERS Safety Report 7799798-4 (Version None)
Quarter: 2011Q4

REPORT INFORMATION
  Report Type: 
  Country: None (occurrence: None)
  Receive Date: 20111006
  Receipt Date: 20110928
  Transmission Date: 20120403
  Serious: Yes (Hospitalization)
  Sender: FDA-Public Use
  Company Number: US-UCBSA-042542

PATIENT
  Age: 23 Year
  Sex: Male
  Weight: 47.73 kg

DRUGS (22)
  1. CERTOLIZUMAB PEGOL [Suspect]
     Route: 058
     Dates: start: 20110121, end: 20110101
  2. ASCORBIC ACID [Concomitant]
  3. MULTI-VITAMIN [Concomitant]
     Dosage: DAILY
  4. CLONAZEPAM [Concomitant]
     Route: 048
  5. CERTOLIZUMAB PEGOL [Suspect]
     Indication: CROHN'S DISEASE
     Route: 058
     Dates: start: 20110405
  6. FLUCONAZOLE [Concomitant]
     Dates: start: 20110904, end: 20110918
  7. ONDANSETRON [Concomitant]
     Indication: NAUSEA
  8. CERTOLIZUMAB PEGOL [Suspect]
     Route: 058
     Dates: start: 20110211, end: 20110225
  9. CERTOLIZUMAB PEGOL [Suspect]
     Route: 058
     Dates: start: 20100326, end: 20100101
  10. LEVAQUIN [Concomitant]
  11. LIDOCAINE [Concomitant]
     Indication: OROPHARYNGEAL PAIN
  12. BENADRYL SWISH AND SWALLOW [Concomitant]
     Indication: OROPHARYNGEAL PAIN
  13. TRAZODONE HYDROCHLORIDE [Concomitant]
     Dosage: AT NIGHT
  14. BENZOCAINE/TETRACAINE [Concomitant]
     Dosage: 1 SPRAY EVERY 4 HOURS
     Route: 061
  15. OMEPRAZOLE [Concomitant]
  16. MALOX [Concomitant]
     Indication: OROPHARYNGEAL PAIN
  17. PERCOCET [Concomitant]
     Indication: PAIN
     Dosage: 5/325MG 1-2 TABLETS; Q4H
     Route: 048
  18. MERCAPTOPURINE [Concomitant]
     Dosage: DAILY
  19. VITAMIN D [Concomitant]
  20. BUTABEN [Concomitant]
     Dosage: 1 SPRAY EVERY 4 HOURS
     Route: 061
  21. CERTOLIZUMAB PEGOL [Suspect]
     Route: 058
     Dates: start: 20100629, end: 20101115
  22. MERCAPTOPURINE [Concomitant]
     Dosage: DAILY
     Route: 048
     Dates: start: 20100401

REACTIONS (1)
  - OROPHARYNGEAL CANDIDIASIS [None]
